FAERS Safety Report 18206676 (Version 1)
Quarter: 2020Q3

REPORT INFORMATION
  Report Type: Spontaneous
  Country: JP (occurrence: JP)
  Receive Date: 20200828
  Receipt Date: 20200828
  Transmission Date: 20201103
  Serious: Yes (Hospitalization)
  Sender: FDA-Public Use
  Company Number: JP-TEVA-2020-JP-1822083

PATIENT
  Age: 74 Year
  Sex: Female

DRUGS (2)
  1. LEVODOPA PREPARATION [Concomitant]
     Active Substance: LEVODOPA
     Route: 065
  2. AZILECT [Suspect]
     Active Substance: RASAGILINE MESYLATE
     Indication: PARKINSON^S DISEASE
     Dosage: 1 MILLIGRAM DAILY;
     Route: 048

REACTIONS (2)
  - Dyskinesia [Recovered/Resolved]
  - Dehydration [Recovered/Resolved]
